FAERS Safety Report 23230210 (Version 1)
Quarter: 2023Q4

REPORT INFORMATION
  Report Type: Spontaneous
  Country: US (occurrence: None)
  Receive Date: 20231122
  Receipt Date: 20231122
  Transmission Date: 20240110
  Serious: No
  Sender: FDA-Public Use
  Company Number: None

PATIENT
  Age: 74 Year
  Sex: Female
  Weight: 81.6 kg

DRUGS (1)
  1. DUPIXENT [Suspect]
     Active Substance: DUPILUMAB
     Indication: Asthma
     Dosage: 600 MG EVERY 2 WEEKS SUBCUTANEOUS?
     Route: 058
     Dates: start: 20221220

REACTIONS (5)
  - Product label confusion [None]
  - Incorrect dose administered by device [None]
  - Product packaging confusion [None]
  - Device use confusion [None]
  - Product advertising issue [None]
